FAERS Safety Report 9801597 (Version 2)
Quarter: 2014Q1

REPORT INFORMATION
  Report Type: Spontaneous
  Country: US (occurrence: US)
  Receive Date: 20140107
  Receipt Date: 20140116
  Transmission Date: 20141002
  Serious: No
  Sender: FDA-Public Use
  Company Number: US-009507513-1312USA012383

PATIENT
  Sex: Female
  Weight: 19.5 kg

DRUGS (4)
  1. MIRALAX [Suspect]
     Indication: CONSTIPATION
     Dosage: 8.5 G, QD
     Route: 048
     Dates: start: 2007
  2. LEVOCARNITINE [Concomitant]
     Indication: HYPOTONIA
     Dosage: UNK, UNKNOWN
  3. LEVOCARNITINE [Concomitant]
     Indication: DEVELOPMENTAL DELAY
  4. VITAMIN D (UNSPECIFIED) [Concomitant]
     Indication: VITAMIN D DEFICIENCY
     Dosage: UNK, UNKNOWN

REACTIONS (5)
  - Incorrect drug administration duration [Unknown]
  - Drug administered to patient of inappropriate age [Unknown]
  - Off label use [Unknown]
  - Product odour abnormal [Unknown]
  - Product quality issue [Unknown]
